FAERS Safety Report 9512089 (Version 2)
Quarter: 2014Q1

REPORT INFORMATION
  Report Type: Report from Study
  Country: DE (occurrence: DE)
  Receive Date: 20130910
  Receipt Date: 20140306
  Transmission Date: 20141002
  Serious: Yes (Hospitalization)
  Sender: FDA-Public Use
  Company Number: DE-ROCHE-1272057

PATIENT
  Age: 75 Year
  Sex: Female
  Weight: 66 kg

DRUGS (1)
  1. TOCILIZUMAB [Suspect]
     Indication: RHEUMATOID ARTHRITIS
     Route: 042
     Dates: start: 20121127

REACTIONS (1)
  - Bicytopenia [Recovered/Resolved]
